FAERS Safety Report 11692023 (Version 3)
Quarter: 2016Q1

REPORT INFORMATION
  Report Type: Spontaneous
  Country: CA (occurrence: CA)
  Receive Date: 20151103
  Receipt Date: 20160216
  Transmission Date: 20160525
  Serious: Yes (Other)
  Sender: FDA-Public Use
  Company Number: CA-BEH-2015055075

PATIENT
  Age: 48 Year
  Sex: Female
  Weight: 49.9 kg

DRUGS (32)
  1. HIZENTRA [Suspect]
     Active Substance: HUMAN IMMUNOGLOBULIN G
     Route: 058
     Dates: start: 20150618
  2. HIZENTRA [Suspect]
     Active Substance: HUMAN IMMUNOGLOBULIN G
     Indication: PRODUCT USED FOR UNKNOWN INDICATION
     Route: 058
     Dates: start: 20150811, end: 20150811
  3. HIZENTRA [Suspect]
     Active Substance: HUMAN IMMUNOGLOBULIN G
     Route: 058
     Dates: start: 20150802
  4. HIZENTRA [Suspect]
     Active Substance: HUMAN IMMUNOGLOBULIN G
     Route: 058
     Dates: start: 20150627
  5. HIZENTRA [Suspect]
     Active Substance: HUMAN IMMUNOGLOBULIN G
     Route: 058
     Dates: start: 20150727
  6. HIZENTRA [Suspect]
     Active Substance: HUMAN IMMUNOGLOBULIN G
     Route: 058
     Dates: start: 20150818
  7. HIZENTRA [Suspect]
     Active Substance: HUMAN IMMUNOGLOBULIN G
     Route: 058
     Dates: start: 20150514
  8. FLORINEF ACETATE [Concomitant]
     Active Substance: FLUDROCORTISONE ACETATE
     Dosage: 0.1MG. TAKE HALF A TABLET ONCE A DAY BUT 1 TABLET ON WEDNESDAY AND SATURDAY
     Route: 048
  9. JAMP-VITAMIN B12 L.A [Concomitant]
     Dosage: WEDNESDAYS AT NOON
     Route: 048
  10. HIZENTRA [Suspect]
     Active Substance: HUMAN IMMUNOGLOBULIN G
     Route: 058
     Dates: start: 20150704
  11. HIZENTRA [Suspect]
     Active Substance: HUMAN IMMUNOGLOBULIN G
     Route: 058
     Dates: start: 20150730
  12. ROCALTROL [Concomitant]
     Active Substance: CALCITRIOL
     Dosage: IN THE MORNING
     Route: 048
  13. NOVORAPID PEN [Concomitant]
     Dosage: 100 IU/ML SUBCUTANEOUSLY
     Route: 058
  14. CALCIUM/MAGNESIUM [Concomitant]
     Dosage: 333MG/167MG. 2 TABLETS.
     Route: 048
  15. JAMP-VITAMIN B12 L.A [Concomitant]
     Dosage: WEDNESDAYS AT NOON
     Route: 048
  16. HIZENTRA [Suspect]
     Active Substance: HUMAN IMMUNOGLOBULIN G
     Route: 058
     Dates: start: 20150815
  17. HIZENTRA [Suspect]
     Active Substance: HUMAN IMMUNOGLOBULIN G
     Dosage: SEP-2015. 10ML MONDAY, 20ML WEDNESDAY, 10ML FRIDAY
     Route: 058
  18. CYMBALTA [Concomitant]
     Active Substance: DULOXETINE HYDROCHLORIDE
     Dosage: AT BEDTIME
     Route: 048
  19. HIZENTRA [Suspect]
     Active Substance: HUMAN IMMUNOGLOBULIN G
     Route: 058
     Dates: start: 20150717
  20. HIZENTRA [Suspect]
     Active Substance: HUMAN IMMUNOGLOBULIN G
     Route: 058
     Dates: start: 20150723
  21. PANTOPRAZOLE SODIUM. [Concomitant]
     Active Substance: PANTOPRAZOLE SODIUM
     Dosage: 30 MINUTES BEFORE BREAKFAST
     Route: 048
  22. JAMP-VITAMIN D [Concomitant]
     Dosage: 1 TABLET TUESDAYS AT NOON
     Route: 048
  23. APO-METFORMIN [Concomitant]
     Route: 048
  24. CORTEF [Concomitant]
     Active Substance: HYDROCORTISONE
     Dosage: 10MG. ONE TABLET IN THE MORNING, 1 AT NOON AND 1/2 TABLET AT DINNER
     Route: 048
  25. HIZENTRA [Suspect]
     Active Substance: HUMAN IMMUNOGLOBULIN G
     Route: 058
     Dates: start: 20150710
  26. HIZENTRA [Suspect]
     Active Substance: HUMAN IMMUNOGLOBULIN G
     Route: 058
     Dates: start: 20150808
  27. HIZENTRA [Suspect]
     Active Substance: HUMAN IMMUNOGLOBULIN G
     Dosage: 40ML. DIVIDED INTO 3 WEEKLY ADMINISTRATIONS.
     Route: 058
  28. RAPAMUNE [Concomitant]
     Active Substance: SIROLIMUS
     Dosage: TOOK 2 TABLETS/DAY UNTIL 06-AUG, THEN 1 TABLET UNTIL 17-AUG AND STOPPED AFTERWARDS
     Route: 048
  29. LANTUS CART [Concomitant]
     Dosage: 100 IU/ML. AT BEDTIME
  30. HIZENTRA [Suspect]
     Active Substance: HUMAN IMMUNOGLOBULIN G
     Route: 058
     Dates: start: 20150719
  31. HIZENTRA [Suspect]
     Active Substance: HUMAN IMMUNOGLOBULIN G
     Route: 058
     Dates: start: 20150820
  32. EURO FOLIC [Concomitant]
     Dosage: THURSDAYS AT NOON
     Route: 048

REACTIONS (64)
  - Pyrexia [Unknown]
  - Nausea [Unknown]
  - Asthenia [Unknown]
  - Nausea [Unknown]
  - Headache [Unknown]
  - Piloerection [Unknown]
  - Neck pain [Unknown]
  - Chills [Unknown]
  - Headache [Unknown]
  - Chills [Unknown]
  - Arthralgia [Unknown]
  - Neck pain [Unknown]
  - Nausea [Unknown]
  - Nausea [Unknown]
  - Pain in extremity [Unknown]
  - Piloerection [Unknown]
  - Piloerection [Unknown]
  - Fatigue [Unknown]
  - Arthralgia [Unknown]
  - Oropharyngeal pain [Unknown]
  - Chills [Unknown]
  - Nausea [Unknown]
  - Fatigue [Unknown]
  - Blood pressure decreased [Unknown]
  - Neck pain [Unknown]
  - Arthralgia [Unknown]
  - Piloerection [Unknown]
  - Pain [Unknown]
  - Pain in extremity [Unknown]
  - Nausea [Unknown]
  - Nausea [Unknown]
  - Chills [Unknown]
  - Headache [Unknown]
  - Chills [Unknown]
  - Arthralgia [Unknown]
  - Headache [Unknown]
  - Headache [Unknown]
  - Pain in extremity [Unknown]
  - Headache [Unknown]
  - Headache [Unknown]
  - Headache [Unknown]
  - Chills [Unknown]
  - Chills [Unknown]
  - Chills [Unknown]
  - Diarrhoea [Unknown]
  - Chills [Unknown]
  - Pain in extremity [Unknown]
  - Headache [Unknown]
  - Neck pain [Unknown]
  - Nausea [Unknown]
  - Arthralgia [Unknown]
  - Fatigue [Unknown]
  - Headache [Unknown]
  - Headache [Unknown]
  - Fatigue [Unknown]
  - Arthralgia [Unknown]
  - Arthralgia [Unknown]
  - Headache [Unknown]
  - Pain [Unknown]
  - Drug intolerance [Unknown]
  - Muscular weakness [Unknown]
  - Pain [Unknown]
  - Pain [Unknown]
  - Neck pain [Unknown]

NARRATIVE: CASE EVENT DATE: 20150618
